FAERS Safety Report 23361130 (Version 2)
Quarter: 2024Q1

REPORT INFORMATION
  Report Type: Spontaneous
  Country: US (occurrence: US)
  Receive Date: 20240103
  Receipt Date: 20240123
  Transmission Date: 20240410
  Serious: No
  Sender: FDA-Public Use
  Company Number: US-PFIZER INC-202300441360

PATIENT
  Age: 61 Year
  Sex: Female

DRUGS (1)
  1. ESTRING [Suspect]
     Active Substance: ESTRADIOL
     Indication: Cystocele
     Dosage: UNK

REACTIONS (5)
  - Vulvovaginal pain [Unknown]
  - Device placement issue [Unknown]
  - Device dislocation [Unknown]
  - Vulvovaginal discomfort [Unknown]
  - Off label use [Unknown]
